FAERS Safety Report 25553972 (Version 1)
Quarter: 2025Q3

REPORT INFORMATION
  Report Type: Spontaneous
  Country: US (occurrence: None)
  Receive Date: 20250714
  Receipt Date: 20250714
  Transmission Date: 20251020
  Serious: Yes (Life-Threatening, Hospitalization, Disabling)
  Sender: FDA-CTU
  Company Number: None

PATIENT
  Age: 50 Year
  Sex: Female
  Weight: 49.5 kg

DRUGS (5)
  1. EFFEXOR [Suspect]
     Active Substance: VENLAFAXINE HYDROCHLORIDE
  2. ZOLOFT [Suspect]
     Active Substance: SERTRALINE HYDROCHLORIDE
  3. WELLBUTRIN [Suspect]
     Active Substance: BUPROPION HYDROCHLORIDE
  4. AMITRIPTYLINE [Suspect]
     Active Substance: AMITRIPTYLINE
  5. GABAPENTIN [Concomitant]
     Active Substance: GABAPENTIN

REACTIONS (21)
  - Disorientation [None]
  - Confusional state [None]
  - Depersonalisation/derealisation disorder [None]
  - Derealisation [None]
  - Amnesia [None]
  - Anhedonia [None]
  - Pain [None]
  - Abdominal pain upper [None]
  - Spinal pain [None]
  - Feeling abnormal [None]
  - Skin disorder [None]
  - Musculoskeletal disorder [None]
  - Muscle spasms [None]
  - Gait disturbance [None]
  - Nightmare [None]
  - Hyperhidrosis [None]
  - Chills [None]
  - Dysphagia [None]
  - Weight decreased [None]
  - Suicidal ideation [None]
  - Brain injury [None]

NARRATIVE: CASE EVENT DATE: 20200401
